FAERS Safety Report 9647498 (Version 1)
Quarter: 2013Q4

REPORT INFORMATION
  Report Type: Report from Study
  Country: US (occurrence: US)
  Receive Date: 20131028
  Receipt Date: 20131028
  Transmission Date: 20140711
  Serious: Yes (Hospitalization)
  Sender: FDA-Public Use
  Company Number: US-ROCHE-1295120

PATIENT
  Sex: Male

DRUGS (1)
  1. XELODA [Suspect]
     Indication: COLON CANCER
     Dosage: THREE TABLETS, EVERY AM, EVERY PM
     Route: 048
     Dates: start: 20130826, end: 20130930

REACTIONS (2)
  - Convulsion [Recovering/Resolving]
  - Infection [Recovering/Resolving]
